FAERS Safety Report 18848963 (Version 2)
Quarter: 2021Q1

REPORT INFORMATION
  Report Type: Report from Study
  Country: US (occurrence: US)
  Receive Date: 20210205
  Receipt Date: 20210310
  Transmission Date: 20210419
  Serious: Yes (Death)
  Sender: FDA-Public Use
  Company Number: NVSC2021US025695

PATIENT
  Sex: Female
  Weight: 56.8 kg

DRUGS (1)
  1. AFINITOR [Suspect]
     Active Substance: EVEROLIMUS
     Indication: GLIOMA
     Dosage: 10 MG, QD (5 TOTAL DOSES)
     Route: 048
     Dates: start: 20210106, end: 20210110

REACTIONS (7)
  - Glioma [Fatal]
  - Dysphagia [Unknown]
  - Malignant neoplasm progression [Fatal]
  - Respiratory distress [Fatal]
  - Pyrexia [Fatal]
  - COVID-19 [Fatal]
  - Pain [Fatal]
